FAERS Safety Report 7402382-5 (Version None)
Quarter: 2011Q2

REPORT INFORMATION
  Report Type: 
  Country: None (occurrence: None)
  Receive Date: 20110408
  Receipt Date: 20110401
  Transmission Date: 20111010
  Serious: Yes (Hospitalization)
  Sender: FDA-Public Use
  Company Number: US-BRISTOL-MYERS SQUIBB COMPANY-15630676

PATIENT
  Age: 62 Year
  Sex: Female

DRUGS (6)
  1. CYMBALTA [Suspect]
  2. ABILIFY [Suspect]
     Indication: DEPRESSION
     Dosage: 2MG
     Dates: start: 20090501
  3. REMICADE [Suspect]
     Dosage: INFUSION
     Route: 042
  4. DEXEDRINE [Suspect]
     Dosage: 5MG
  5. AMBIEN [Suspect]
  6. XANAX [Suspect]

REACTIONS (3)
  - THROMBOCYTOPENIA [None]
  - HEPATIC FAILURE [None]
  - RENAL FAILURE [None]
